FAERS Safety Report 7836256-2 (Version None)
Quarter: 2011Q4

REPORT INFORMATION
  Report Type: 
  Country: None (occurrence: None)
  Receive Date: 20111024
  Receipt Date: 20110426
  Transmission Date: 20120403
  Serious: No
  Sender: FDA-Public Use
  Company Number: US-ABBOTT-11P-163-0722352-00

PATIENT
  Sex: Female

DRUGS (6)
  1. VICODIN [Concomitant]
     Indication: PRODUCT USED FOR UNKNOWN INDICATION
  2. ALBUTEROL [Concomitant]
     Indication: PRODUCT USED FOR UNKNOWN INDICATION
  3. LUPRON DEPOT [Suspect]
     Indication: ENDOMETRIOSIS
     Dates: start: 20110121
  4. ALLEGRA [Concomitant]
     Indication: PRODUCT USED FOR UNKNOWN INDICATION
  5. NORCO [Concomitant]
     Indication: PRODUCT USED FOR UNKNOWN INDICATION
  6. NORETHINDRONE [Concomitant]
     Indication: PRODUCT USED FOR UNKNOWN INDICATION

REACTIONS (2)
  - RASH [None]
  - HEADACHE [None]
